FAERS Safety Report 9205192 (Version 4)
Quarter: 2013Q2

REPORT INFORMATION
  Report Type: Report from Study
  Country: DE (occurrence: DE)
  Receive Date: 20130402
  Receipt Date: 20130517
  Transmission Date: 20140414
  Serious: Yes (Death, Hospitalization)
  Sender: FDA-Public Use
  Company Number: PHHO2013DE004439

PATIENT
  Age: 66 Year
  Sex: Male
  Weight: 79 kg

DRUGS (3)
  1. TKI258 [Suspect]
     Indication: HEPATIC FUNCTION ABNORMAL
     Dosage: 400 MG, QD
     Route: 048
     Dates: start: 20121022
  2. ALDACTONE [Suspect]
     Indication: ASCITES
     Dosage: 50 MG, BID
     Dates: start: 20130204
  3. TOREM [Suspect]
     Indication: ASCITES
     Dosage: 10 MG, BID
     Dates: start: 20130204

REACTIONS (3)
  - Malignant neoplasm progression [Fatal]
  - Renal failure acute [Recovered/Resolved]
  - Dehydration [Recovered/Resolved]
